FAERS Safety Report 6237410-6 (Version None)
Quarter: 2009Q2

REPORT INFORMATION
  Report Type: 
  Country: None (occurrence: None)
  Receive Date: 20090619
  Receipt Date: 20090617
  Transmission Date: 20091009
  Serious: Yes (Hospitalization)
  Sender: FDA-Public Use
  Company Number: FR-WYE-G03861009

PATIENT
  Sex: Male

DRUGS (12)
  1. TAZOCILLINE [Suspect]
     Indication: INFECTION IN AN IMMUNOCOMPROMISED HOST
     Dosage: UNKNOWN
     Route: 042
     Dates: start: 20090524, end: 20090528
  2. METHOTREXATE [Suspect]
     Indication: CHRONIC MYELOID LEUKAEMIA
     Dosage: UNKNOWN
     Route: 042
     Dates: start: 20090520, end: 20090522
  3. METHOTREXATE [Suspect]
     Dosage: UNKNOWN
     Route: 042
     Dates: start: 20090525, end: 20090525
  4. VANCOMYCIN HCL [Concomitant]
     Indication: INFECTION IN AN IMMUNOCOMPROMISED HOST
     Dosage: UNKNOWN
     Route: 042
     Dates: start: 20090524
  5. ZOVIRAX [Concomitant]
     Dosage: UNKNOWN
     Dates: start: 20090512
  6. CYCLOSPORINE [Concomitant]
     Dosage: UNKNOWN
  7. POLARAMINE [Suspect]
     Dosage: UNKNOWN
     Dates: start: 20090531, end: 20090602
  8. TIENAM [Suspect]
     Dosage: UNKNOWN
     Dates: start: 20090528, end: 20090602
  9. LARGACTIL [Suspect]
     Dosage: UNKNOWN
     Dates: end: 20090602
  10. HEPARIN [Concomitant]
     Dosage: UNKNOWN
  11. LEXOMIL [Suspect]
     Indication: ANXIETY
     Dosage: 1 TABLET TOTAL DAILY
     Route: 048
     Dates: start: 20090524, end: 20090527
  12. CANCIDAS [Suspect]
     Dosage: UNKNOWN
     Dates: start: 20090528, end: 20090602

REACTIONS (10)
  - COUGH [None]
  - CYTOLYTIC HEPATITIS [None]
  - DIARRHOEA [None]
  - FAECES DISCOLOURED [None]
  - PURPURA [None]
  - PYREXIA [None]
  - RASH ERYTHEMATOUS [None]
  - RASH PAPULAR [None]
  - RASH PRURITIC [None]
  - SUBCUTANEOUS ABSCESS [None]
